FAERS Safety Report 7083565-3 (Version None)
Quarter: 2010Q4

REPORT INFORMATION
  Report Type: 
  Country: None (occurrence: None)
  Receive Date: 20101104
  Receipt Date: 20101027
  Transmission Date: 20110411
  Serious: Yes (Hospitalization)
  Sender: FDA-Public Use
  Company Number: FI-ROCHE-737302

PATIENT
  Sex: Female

DRUGS (1)
  1. XELODA [Suspect]
     Dosage: 4 +4 TABLETS DAILY (=2000 MG + 2000 MG) FOR 14 DAYS FOLLOWED BY A 7-DAY DRUG REST
     Route: 048
     Dates: start: 20100427, end: 20100510

REACTIONS (9)
  - ABDOMINAL PAIN UPPER [None]
  - ADVERSE DRUG REACTION [None]
  - DEHYDRATION [None]
  - DIARRHOEA [None]
  - HAEMOGLOBIN [None]
  - NEUTROPENIA [None]
  - OROPHARYNGEAL BLISTERING [None]
  - THROMBOCYTOPENIA [None]
  - VOMITING [None]
